FAERS Safety Report 5724235-0 (Version None)
Quarter: 2008Q2

REPORT INFORMATION
  Report Type: 
  Country: None (occurrence: None)
  Receive Date: 20080430
  Receipt Date: 20080423
  Transmission Date: 20081010
  Serious: Yes (Death, Hospitalization)
  Sender: FDA-Public Use
  Company Number: FR-MERCK-0804USA01926

PATIENT
  Age: 95 Year
  Sex: Female

DRUGS (5)
  1. MODURETIC 5-50 [Suspect]
     Indication: HYPERTENSION
     Route: 048
  2. PROTONIX [Suspect]
     Route: 048
  3. ADANCOR [Concomitant]
     Route: 065
  4. ASPEGIC 1000 [Concomitant]
     Route: 065
  5. CYANOCOBALAMIN [Concomitant]
     Route: 065

REACTIONS (7)
  - ATRIAL FIBRILLATION [None]
  - GENERAL PHYSICAL HEALTH DETERIORATION [None]
  - HYPOKALAEMIA [None]
  - HYPONATRAEMIA [None]
  - NERVOUS SYSTEM DISORDER [None]
  - RESPIRATORY ACIDOSIS [None]
  - URINARY TRACT INFECTION [None]
